FAERS Safety Report 20169154 (Version 1)
Quarter: 2021Q4

REPORT INFORMATION
  Report Type: Spontaneous
  Country: CN (occurrence: CN)
  Receive Date: 20211210
  Receipt Date: 20211210
  Transmission Date: 20220303
  Serious: Yes (Other)
  Sender: FDA-Public Use
  Company Number: CN-BEIGENE USA INC-BGN-2021-006595

PATIENT

DRUGS (1)
  1. BRUKINSA [Suspect]
     Active Substance: ZANUBRUTINIB
     Indication: Lymphoma
     Dosage: 160 MILLIGRAM, BID
     Route: 048
     Dates: start: 20211124, end: 20211125

REACTIONS (4)
  - Blood pressure increased [Recovering/Resolving]
  - Tremor [Recovered/Resolved]
  - Dizziness [Recovered/Resolved]
  - Asthenia [Recovering/Resolving]

NARRATIVE: CASE EVENT DATE: 20211124
